FAERS Safety Report 13994367 (Version 1)
Quarter: 2017Q3

REPORT INFORMATION
  Report Type: Spontaneous
  Country: US (occurrence: US)
  Receive Date: 20170920
  Receipt Date: 20170920
  Transmission Date: 20171128
  Serious: Yes (Disabling)
  Sender: FDA-Public Use
  Company Number: None

PATIENT
  Age: 43 Year
  Sex: Male
  Weight: 110.25 kg

DRUGS (6)
  1. ALLEGRA [Concomitant]
     Active Substance: FEXOFENADINE HYDROCHLORIDE
  2. LEVOFLOXACIN. [Suspect]
     Active Substance: LEVOFLOXACIN
     Indication: PROSTATITIS
     Dosage: ?          QUANTITY:1 TABLET(S);?
     Route: 048
  3. ESCITALOPRAM [Concomitant]
     Active Substance: ESCITALOPRAM OXALATE
  4. DAILY MULTIVITAMIN [Concomitant]
     Active Substance: VITAMINS
  5. CLARITIN [Concomitant]
     Active Substance: LORATADINE
  6. PROBIOTIC [Concomitant]
     Active Substance: PROBIOTICS NOS

REACTIONS (7)
  - Loss of personal independence in daily activities [None]
  - Gait disturbance [None]
  - Muscle tightness [None]
  - Arthralgia [None]
  - Hypoaesthesia [None]
  - Paraesthesia [None]
  - Asthenia [None]

NARRATIVE: CASE EVENT DATE: 20170911
